FAERS Safety Report 4823374-6 (Version None)
Quarter: 2005Q4

REPORT INFORMATION
  Report Type: 
  Country: None (occurrence: None)
  Receive Date: 20051108
  Receipt Date: 20051108
  Transmission Date: 20060501
  Serious: Yes (Other)
  Sender: FDA-Public Use
  Company Number: None

PATIENT
  Sex: Male
  Weight: 86.1834 kg

DRUGS (2)
  1. CIPRO [Suspect]
     Indication: DIARRHOEA INFECTIOUS
     Dosage: 500MG   1 DAILY   PO
     Route: 048
     Dates: start: 20051029, end: 20051029
  2. CIPRO [Suspect]
     Indication: DIARRHOEA INFECTIOUS
     Dosage: 500MG   1 DAILY   PO
     Route: 048
     Dates: start: 20051029, end: 20051029

REACTIONS (5)
  - ERYTHEMA [None]
  - HYPOTENSION [None]
  - PARAESTHESIA ORAL [None]
  - PRURITUS [None]
  - URTICARIA [None]
